FAERS Safety Report 10426802 (Version 5)
Quarter: 2014Q3

REPORT INFORMATION
  Report Type: Report from Study
  Country: JP (occurrence: JP)
  Receive Date: 20140903
  Receipt Date: 20140919
  Transmission Date: 20150326
  Serious: Yes (Death, Hospitalization)
  Sender: FDA-Public Use
  Company Number: JP-ROCHE-1427493

PATIENT
  Age: 82 Year
  Sex: Male

DRUGS (8)
  1. HEPARIN LOCK SOLUTION [Concomitant]
     Route: 042
  2. CRAVIT [Concomitant]
     Active Substance: LEVOFLOXACIN
     Route: 048
  3. NIFEDIPINE. [Concomitant]
     Active Substance: NIFEDIPINE
     Dosage: NIFEDIPINE CR TABLETS
     Route: 048
  4. ENTERONON-R [Concomitant]
     Active Substance: PROBIOTICS NOS
     Route: 048
  5. METHOXY POLYETHYLENE GLYCOL-EPOETIN BETA [Suspect]
     Active Substance: PEGZEREPOETIN ALFA
     Indication: NEPHROGENIC ANAEMIA
     Dosage: MOST RECENT THERAPY ON 08/APR/2014
     Route: 058
     Dates: start: 20131210
  6. ARTIST [Concomitant]
     Active Substance: CARVEDILOL
     Route: 048
  7. EXFORGE [Concomitant]
     Active Substance: AMLODIPINE BESYLATE\VALSARTAN
     Route: 048
  8. MEROPEN [Concomitant]
     Active Substance: MEROPENEM
     Route: 042

REACTIONS (5)
  - Myelodysplastic syndrome [Fatal]
  - Cardiac failure congestive [Recovering/Resolving]
  - Renal impairment [Recovering/Resolving]
  - Cardiac failure [Fatal]
  - Pneumonia [Fatal]

NARRATIVE: CASE EVENT DATE: 20140227
